FAERS Safety Report 9191153 (Version 1)
Quarter: 2013Q1

REPORT INFORMATION
  Report Type: Spontaneous
  Country: US (occurrence: US)
  Receive Date: 20130326
  Receipt Date: 20130326
  Transmission Date: 20140127
  Serious: No
  Sender: FDA-Public Use
  Company Number: US-PFIZER INC-2013095997

PATIENT
  Age: 80 Year
  Sex: Female
  Weight: 47.62 kg

DRUGS (5)
  1. CLEOCIN [Suspect]
     Indication: VAGINAL INFECTION
     Dosage: 100 MG, 1X/DAY
     Route: 067
     Dates: start: 20130320
  2. CLEOCIN [Suspect]
     Indication: HORMONE LEVEL ABNORMAL
  3. TYLENOL [Suspect]
     Dosage: UNK
  4. ARMOUR THYROID [Concomitant]
     Indication: THYROID DISORDER
     Dosage: UNK
  5. VITAMIN D [Concomitant]
     Dosage: UNK

REACTIONS (3)
  - Hypersensitivity [Unknown]
  - Blood pressure increased [Recovered/Resolved]
  - Feeling abnormal [Unknown]
